FAERS Safety Report 13340030 (Version 1)
Quarter: 2017Q1

REPORT INFORMATION
  Report Type: Report from Study
  Country: BR (occurrence: BR)
  Receive Date: 20170316
  Receipt Date: 20170316
  Transmission Date: 20170428
  Serious: Yes (Other)
  Sender: FDA-Public Use
  Company Number: PHHY2017BR038217

PATIENT
  Sex: Female
  Weight: 73 kg

DRUGS (1)
  1. EXELON PATCH [Suspect]
     Active Substance: RIVASTIGMINE
     Indication: DEMENTIA ALZHEIMER^S TYPE
     Dosage: 13.3 MG, QD, (PATCH 15 (CM2))
     Route: 062

REACTIONS (6)
  - Dementia Alzheimer^s type [Unknown]
  - Cerebrovascular accident [Recovered/Resolved with Sequelae]
  - Grip strength decreased [Recovered/Resolved with Sequelae]
  - Weight decreased [Unknown]
  - Drug administered at inappropriate site [Unknown]
  - Oral discomfort [Recovered/Resolved with Sequelae]
